FAERS Safety Report 15662389 (Version 1)
Quarter: 2018Q4

REPORT INFORMATION
  Report Type: Spontaneous
  Country: IT (occurrence: IT)
  Receive Date: 20181127
  Receipt Date: 20181127
  Transmission Date: 20190205
  Serious: Yes (Other)
  Sender: FDA-Public Use
  Company Number: PHHY2018IT166343

PATIENT
  Age: 66 Year
  Sex: Female

DRUGS (2)
  1. ROCEFIN [Suspect]
     Active Substance: CEFTRIAXONE SODIUM
     Indication: INFECTION
     Dosage: 1 DF, QD (1G/3.5 ML)
     Route: 030
     Dates: start: 20180209, end: 20180213
  2. LEVOFLOXACIN. [Suspect]
     Active Substance: LEVOFLOXACIN
     Indication: INFECTION
     Dosage: 1 DF, QD
     Route: 048
     Dates: start: 20180213, end: 20180215

REACTIONS (2)
  - Dyspnoea [Recovering/Resolving]
  - Oedema [Recovering/Resolving]

NARRATIVE: CASE EVENT DATE: 20180213
